FAERS Safety Report 16057807 (Version 1)
Quarter: 2019Q1

REPORT INFORMATION
  Report Type: Spontaneous
  Country: US (occurrence: US)
  Receive Date: 20190311
  Receipt Date: 20190311
  Transmission Date: 20190418
  Serious: Yes (Hospitalization, Other)
  Sender: FDA-Public Use
  Company Number: US-TEVA-2019-US-1023545

PATIENT
  Age: 12 Year
  Sex: Female

DRUGS (4)
  1. PRINCIPEN [Suspect]
     Active Substance: AMPICILLIN TRIHYDRATE
     Dates: start: 20120619
  2. EQUATE IBUPROFEN [Suspect]
     Active Substance: IBUPROFEN
     Indication: PYREXIA
     Dates: start: 20120715
  3. PENICILLIN [Suspect]
     Active Substance: PENICILLIN
     Dates: start: 20120619
  4. MOTRIN IB [Suspect]
     Active Substance: IBUPROFEN
     Indication: PYREXIA
     Dates: start: 20120715

REACTIONS (4)
  - Mouth ulceration [Unknown]
  - Stevens-Johnson syndrome [Unknown]
  - Toxic epidermal necrolysis [Unknown]
  - Rash [Unknown]

NARRATIVE: CASE EVENT DATE: 2012
